FAERS Safety Report 6600484-4 (Version None)
Quarter: 2010Q1

REPORT INFORMATION
  Report Type: 
  Country: None (occurrence: None)
  Receive Date: 20100223
  Receipt Date: 20100223
  Transmission Date: 20100710
  Serious: No
  Sender: FDA-Public Use
  Company Number: None

PATIENT
  Age: 30 Year
  Sex: Female
  Weight: 56.6996 kg

DRUGS (1)
  1. TRI LO SPRINTEC [Suspect]
     Indication: CONTRACEPTION
     Dosage: 1 PILL 1 TIME PER DAY PO
     Route: 048
     Dates: start: 20090726, end: 20090730

REACTIONS (12)
  - ANXIETY [None]
  - CRYING [None]
  - DEPRESSION [None]
  - HYPOPHAGIA [None]
  - INSOMNIA [None]
  - IRRITABILITY [None]
  - PRODUCT SUBSTITUTION ISSUE [None]
  - SUICIDAL IDEATION [None]
  - TACHYPHRENIA [None]
  - THIRST [None]
  - TREMOR [None]
  - WEIGHT DECREASED [None]
